FAERS Safety Report 9665989 (Version 1)
Quarter: 2013Q4

REPORT INFORMATION
  Report Type: Spontaneous
  Country: SE (occurrence: SE)
  Receive Date: 20131104
  Receipt Date: 20131104
  Transmission Date: 20140711
  Serious: Yes (Life-Threatening)
  Sender: FDA-Public Use
  Company Number: SE-MALLINCKRODT-T201304739

PATIENT
  Age: 45 Year
  Sex: Male

DRUGS (1)
  1. OPTIRAY 350 [Suspect]
     Indication: PRODUCT USED FOR UNKNOWN INDICATION
     Dosage: 135 ML, SINGLE
     Route: 042
     Dates: start: 20130818, end: 20130818

REACTIONS (3)
  - Hypersensitivity [Unknown]
  - Tachycardia [Unknown]
  - Rash [Unknown]
